FAERS Safety Report 7473143-6 (Version None)
Quarter: 2011Q2

REPORT INFORMATION
  Report Type: 
  Country: None (occurrence: None)
  Receive Date: 20110503
  Receipt Date: 20110418
  Transmission Date: 20111010
  Serious: Yes (Other)
  Sender: FDA-Public Use
  Company Number: 025968

PATIENT
  Sex: Female
  Weight: 86.2 kg

DRUGS (3)
  1. BENADRYL [Concomitant]
  2. LACOSAMIDE [Suspect]
     Indication: CONVULSION
     Dosage: (50 MG BID ORAL)
     Route: 048
     Dates: start: 20110118, end: 20110120
  3. LEVOTHYROXINE SODIUM [Concomitant]

REACTIONS (6)
  - EPILEPSY [None]
  - PAIN IN EXTREMITY [None]
  - BURNING SENSATION [None]
  - PARAESTHESIA [None]
  - HEADACHE [None]
  - HYPOTHYROIDISM [None]
